FAERS Safety Report 23865762 (Version 1)
Quarter: 2024Q2

REPORT INFORMATION
  Report Type: Report from Study
  Country: CA (occurrence: CA)
  Receive Date: 20240517
  Receipt Date: 20240517
  Transmission Date: 20240716
  Serious: Yes (Other)
  Sender: FDA-Public Use
  Company Number: CA-TAKEDA-2024TUS047283

PATIENT
  Sex: Male
  Weight: 79.365 kg

DRUGS (4)
  1. VEDOLIZUMAB [Suspect]
     Active Substance: VEDOLIZUMAB
     Indication: Colitis ulcerative
     Dosage: 300 MILLIGRAM
     Route: 042
     Dates: start: 20230623
  2. Salofalk [Concomitant]
     Dosage: UNK
     Route: 048
  3. Salofalk [Concomitant]
     Dosage: UNK
     Dates: start: 2003
  4. MESALAMINE [Concomitant]
     Active Substance: MESALAMINE
     Dosage: 1.2 GRAM, QID

REACTIONS (2)
  - Haematochezia [Unknown]
  - Frequent bowel movements [Unknown]
